FAERS Safety Report 9618718 (Version 1)
Quarter: 2013Q4

REPORT INFORMATION
  Report Type: Spontaneous
  Country: US (occurrence: US)
  Receive Date: 20131014
  Receipt Date: 20131014
  Transmission Date: 20140711
  Serious: Yes (Hospitalization, Other)
  Sender: FDA-Public Use
  Company Number: US-SA-2013SA100530

PATIENT
  Sex: Female

DRUGS (4)
  1. LANTUS [Suspect]
     Dosage: TAKEN FROM: SATURDAY DOSE:50 UNIT(S)
     Route: 058
  2. HUMALOG [Suspect]
     Route: 065
  3. NOVOLIN N [Suspect]
     Route: 065
  4. HUMULIN N [Suspect]
     Route: 065

REACTIONS (7)
  - Lung disorder [Unknown]
  - Blastomycosis [Unknown]
  - Hypercoagulation [Unknown]
  - Contusion [Unknown]
  - Adverse event [Unknown]
  - Stress [Unknown]
  - Weight increased [Unknown]
